FAERS Safety Report 4145989 (Version 2)
Quarter: 2016Q1

REPORT INFORMATION
  Report Type: Spontaneous
  Country: FR (occurrence: FR)
  Receive Date: 20040527
  Receipt Date: 20160107
  Transmission Date: 20160526
  Serious: Yes (Disabling, Other)
  Sender: FDA-Public Use
  Company Number: FR-BRISTOL-MYERS SQUIBB COMPANY-12590444

PATIENT
  Age: 30 Month
  Sex: Female
  Weight: 15 kg

DRUGS (4)
  1. NEVIRAPINE. [Concomitant]
     Active Substance: NEVIRAPINE
     Indication: PRODUCT USED FOR UNKNOWN INDICATION
     Dosage: UNK
     Route: 048
     Dates: start: 20000727, end: 20000729
  2. EPIVIR [Suspect]
     Active Substance: LAMIVUDINE
     Indication: PRODUCT USED FOR UNKNOWN INDICATION
     Dosage: UNK
     Route: 064
     Dates: start: 19970214, end: 20000727
  3. NORVIR [Suspect]
     Active Substance: RITONAVIR
     Indication: PRODUCT USED FOR UNKNOWN INDICATION
     Dosage: UNK
     Route: 064
     Dates: start: 19970214, end: 20000727
  4. VIDEX [Suspect]
     Active Substance: DIDANOSINE
     Indication: PRODUCT USED FOR UNKNOWN INDICATION
     Dosage: UNK
     Route: 064
     Dates: start: 19970214, end: 20000727

REACTIONS (7)
  - Functional gastrointestinal disorder [Unknown]
  - Premature baby [Unknown]
  - Retinoblastoma [Recovered/Resolved with Sequelae]
  - Retinal injury [Recovered/Resolved with Sequelae]
  - Foetal exposure during pregnancy [Unknown]
  - Neoplasm malignant [Recovered/Resolved with Sequelae]
  - Strabismus [Recovered/Resolved with Sequelae]

NARRATIVE: CASE EVENT DATE: 20000727
